FAERS Safety Report 5767656-2 (Version None)
Quarter: 2008Q2

REPORT INFORMATION
  Report Type: 
  Country: None (occurrence: None)
  Receive Date: 20080612
  Receipt Date: 20080610
  Transmission Date: 20081010
  Serious: Yes (Death)
  Sender: FDA-Public Use
  Company Number: FR-SANOFI-SYNTHELABO-F01200801004

PATIENT
  Sex: Male

DRUGS (3)
  1. BEVACIZUMAB [Suspect]
     Dosage: 575 MG
     Route: 041
     Dates: start: 20070530, end: 20070530
  2. OXALIPLATIN [Suspect]
     Indication: COLORECTAL CANCER
     Dosage: 180 MG
     Route: 041
     Dates: start: 20070530, end: 20070530
  3. TARCEVA [Suspect]
     Dosage: 150 MG
     Route: 048

REACTIONS (1)
  - DEATH [None]
